FAERS Safety Report 13303171 (Version 2)
Quarter: 2017Q1

REPORT INFORMATION
  Report Type: Spontaneous
  Country: FR (occurrence: FR)
  Receive Date: 20170307
  Receipt Date: 20170308
  Transmission Date: 20170428
  Serious: Yes (Death)
  Sender: FDA-Public Use
  Company Number: FR-SA-200913769FR

PATIENT
  Age: 49 Year
  Sex: Female

DRUGS (6)
  1. KREDEX [Concomitant]
     Active Substance: CARVEDILOL
     Route: 048
  2. TRIATEC [Concomitant]
     Active Substance: RAMIPRIL
     Route: 048
  3. TAXOTERE [Suspect]
     Active Substance: DOCETAXEL
     Indication: BREAST CANCER METASTATIC
     Route: 042
     Dates: start: 20090511, end: 20090511
  4. LASILIX [Concomitant]
     Active Substance: FUROSEMIDE
  5. ARIMIDEX [Concomitant]
     Active Substance: ANASTROZOLE
     Dosage: DOSE UNIT: 1 MG
     Route: 048
  6. TAXOTERE [Suspect]
     Active Substance: DOCETAXEL
     Indication: BREAST CANCER METASTATIC
     Route: 042

REACTIONS (3)
  - Bone marrow failure [Fatal]
  - Septic shock [Fatal]
  - Colitis [Fatal]

NARRATIVE: CASE EVENT DATE: 20090519
